FAERS Safety Report 14979342 (Version 1)
Quarter: 2018Q2

REPORT INFORMATION
  Report Type: Spontaneous
  Country: GB (occurrence: GB)
  Receive Date: 20180606
  Receipt Date: 20180606
  Transmission Date: 20180711
  Serious: Yes (Other)
  Sender: FDA-Public Use
  Company Number: GB-ENDO PHARMACEUTICALS INC-2018-039485

PATIENT
  Age: 58 Year
  Sex: Female
  Weight: 68 kg

DRUGS (4)
  1. ASPIRIN                            /00002701/ [Concomitant]
     Active Substance: ASPIRIN
     Indication: PRODUCT USED FOR UNKNOWN INDICATION
     Dosage: UNK UNKNOWN, UNKNOWN
     Route: 065
  2. FORTESTA [Suspect]
     Active Substance: TESTOSTERONE
     Indication: HORMONE REPLACEMENT THERAPY
     Dosage: 0.5 G, EVERY TWO DAYS
     Route: 061
     Dates: start: 20180427, end: 20180513
  3. EVOREL CONTI [Concomitant]
     Indication: PRODUCT USED FOR UNKNOWN INDICATION
     Dosage: UNK UNKNOWN, UNKNOWN
     Route: 065
  4. VAGIFEM [Concomitant]
     Active Substance: ESTRADIOL
     Indication: PRODUCT USED FOR UNKNOWN INDICATION
     Dosage: UNK UNKNOWN, UNKNOWN
     Route: 065

REACTIONS (8)
  - Application site inflammation [Not Recovered/Not Resolved]
  - Burning sensation [Not Recovered/Not Resolved]
  - Application site erythema [Not Recovered/Not Resolved]
  - Off label use [Recovered/Resolved]
  - Application site swelling [Not Recovered/Not Resolved]
  - Application site pruritus [Not Recovered/Not Resolved]
  - Overdose [Recovered/Resolved]
  - Application site reaction [Not Recovered/Not Resolved]

NARRATIVE: CASE EVENT DATE: 20180427
